FAERS Safety Report 8452273 (Version 2)
Quarter: 2013Q4

REPORT INFORMATION
  Report Type: Spontaneous
  Country: FR (occurrence: FR)
  Receive Date: 20120311
  Receipt Date: 20131009
  Transmission Date: 20140711
  Serious: Yes (Hospitalization)
  Sender: FDA-Public Use
  Company Number: PHHY2012FR019155

PATIENT
  Age: 60 Year
  Sex: Male

DRUGS (5)
  1. STALEVO [Suspect]
     Indication: PARKINSON^S DISEASE
     Dosage: 1 DF (1000/750/187.5 MG) DAILY
     Route: 048
     Dates: start: 2010
  2. AZILECT [Suspect]
     Indication: PARKINSON^S DISEASE
     Dosage: 1 MG, QD
     Route: 048
     Dates: start: 20111121, end: 20120122
  3. ZOXAN LP [Concomitant]
     Dosage: 8 MG, UNK
  4. ALDACTONE [Concomitant]
     Indication: HYPERTENSION
     Dosage: UNK UKN, UNK
  5. RIVOTRIL [Concomitant]
     Dosage: UNK UKN, UNK

REACTIONS (11)
  - General physical health deterioration [Unknown]
  - Dehydration [Unknown]
  - Vertigo [Recovered/Resolved]
  - Subileus [Recovered/Resolved]
  - Obsessive-compulsive disorder [Not Recovered/Not Resolved]
  - Dyskinesia [Recovered/Resolved]
  - Mental disorder [Not Recovered/Not Resolved]
  - Pyrexia [Recovered/Resolved]
  - Conjunctivitis [Unknown]
  - C-reactive protein increased [Unknown]
  - Arthralgia [Unknown]
